FAERS Safety Report 19825222 (Version 1)
Quarter: 2021Q3

REPORT INFORMATION
  Report Type: Spontaneous
  Country: GB (occurrence: GB)
  Receive Date: 20210914
  Receipt Date: 20210914
  Transmission Date: 20211014
  Serious: Yes (Other)
  Sender: FDA-Public Use
  Company Number: GB-AUROBINDO-AUR-APL-2021-038625

PATIENT
  Age: 19 Year
  Sex: Female
  Weight: 39 kg

DRUGS (5)
  1. CEFALEXIN [Suspect]
     Active Substance: CEPHALEXIN
     Indication: VAGINAL DISCHARGE
     Dosage: TWO TO BE TAKEN THREE TIMES A DAY FOR 10 DAYS
     Route: 065
     Dates: start: 20210823, end: 20210827
  2. DESOGESTREL [Concomitant]
     Active Substance: DESOGESTREL
     Indication: PRODUCT USED FOR UNKNOWN INDICATION
     Dosage: ONE TABLET DAILY AT THE SAME TIME EACH DAY
     Route: 065
     Dates: start: 20210601
  3. MEDROXYPROGESTERONE [Concomitant]
     Active Substance: MEDROXYPROGESTERONE
     Indication: CONTRACEPTION
     Dosage: INJECT 1 EVERY 13 WEEKS AS INSTRUCTED.
     Route: 065
     Dates: start: 20210702, end: 20210814
  4. CEFALEXIN [Concomitant]
     Active Substance: CEPHALEXIN
     Indication: VAGINAL DISCHARGE
     Dosage: TWO TO BE TAKEN THREE TIMES A DAY FOR 10 DAYS
     Route: 065
     Dates: start: 20210823, end: 20210827
  5. ASTRAZENECA COVID?19 VACCINE [Concomitant]
     Active Substance: AZD-1222
     Indication: PRODUCT USED FOR UNKNOWN INDICATION
     Dosage: 1 DOSE BY INTRAMUSCULAR INJECTION
     Route: 065
     Dates: start: 20210611

REACTIONS (1)
  - Drug eruption [Not Recovered/Not Resolved]

NARRATIVE: CASE EVENT DATE: 20210826
